FAERS Safety Report 15477607 (Version 1)
Quarter: 2018Q4

REPORT INFORMATION
  Report Type: Spontaneous
  Country: GR (occurrence: GR)
  Receive Date: 20181009
  Receipt Date: 20181009
  Transmission Date: 20190205
  Serious: No
  Sender: FDA-Public Use
  Company Number: GR-IPSEN BIOPHARMACEUTICALS, INC.-2018-15006

PATIENT
  Age: 75 Year
  Sex: Male

DRUGS (3)
  1. SALOSPIR [Concomitant]
     Active Substance: ASPIRIN
  2. LOPRESSOR [Concomitant]
     Active Substance: METOPROLOL TARTRATE
  3. ARVEKAP 11.25MG [Suspect]
     Active Substance: TRIPTORELIN
     Indication: PROSTATE CANCER
     Route: 030
     Dates: start: 20180120

REACTIONS (3)
  - Tachycardia [Recovering/Resolving]
  - Rash [Recovering/Resolving]
  - Visual impairment [Recovering/Resolving]

NARRATIVE: CASE EVENT DATE: 20180620
